FAERS Safety Report 5332548-X (Version None)
Quarter: 2007Q2

REPORT INFORMATION
  Report Type: 
  Country: None (occurrence: None)
  Receive Date: 20070523
  Receipt Date: 20070522
  Transmission Date: 20071010
  Serious: Yes (Death)
  Sender: FDA-Public Use
  Company Number: JP-BRISTOL-MYERS SQUIBB COMPANY-13789763

PATIENT
  Sex: Female

DRUGS (2)
  1. TAXOL [Suspect]
     Indication: OVARIAN CANCER
     Route: 042
  2. PARAPLATIN [Suspect]
     Indication: OVARIAN CANCER
     Route: 042

REACTIONS (3)
  - IMMUNODEFICIENCY [None]
  - MYELODYSPLASTIC SYNDROME [None]
  - SEPSIS [None]
